FAERS Safety Report 7237572-8 (Version None)
Quarter: 2011Q1

REPORT INFORMATION
  Report Type: 
  Country: None (occurrence: None)
  Receive Date: 20110121
  Receipt Date: 20110113
  Transmission Date: 20110831
  Serious: Yes (Other)
  Sender: FDA-Public Use
  Company Number: FR-BAXTER-2011BH001270

PATIENT

DRUGS (3)
  1. CYCLOPHOSPHAMIDE [Suspect]
     Indication: PROSTATE CANCER
     Route: 065
  2. PREDNISOLONE [Suspect]
     Indication: PROSTATE CANCER
     Route: 065
  3. CYCLOPHOSPHAMIDE [Suspect]
     Indication: OFF LABEL USE
     Route: 065

REACTIONS (2)
  - LYMPHOPENIA [None]
  - NEUTROPENIA [None]
